FAERS Safety Report 11880514 (Version 3)
Quarter: 2016Q4

REPORT INFORMATION
  Report Type: Spontaneous
  Country: GB (occurrence: GB)
  Receive Date: 20151230
  Receipt Date: 20161107
  Transmission Date: 20170206
  Serious: Yes (Other)
  Sender: FDA-Public Use
  Company Number: GB-ELI_LILLY_AND_COMPANY-GB201512007493

PATIENT
  Age: 70 Year
  Sex: Female
  Weight: 42.9 kg

DRUGS (14)
  1. VITAMIN D [Concomitant]
     Active Substance: CHOLECALCIFEROL
     Dosage: UNK, UNKNOWN
     Route: 065
  2. ADVAIR HFA [Concomitant]
     Active Substance: FLUTICASONE PROPIONATE\SALMETEROL XINAFOATE
  3. SALBUTAMOL [Concomitant]
     Active Substance: ALBUTEROL
  4. STRONTIUM RANELATE [Concomitant]
     Active Substance: STRONTIUM RANELATE
     Dosage: UNK UNK, BID
  5. TIOTROPIUM BROMIDE [Concomitant]
     Active Substance: TIOTROPIUM BROMIDE
  6. FORSTEO [Suspect]
     Active Substance: TERIPARATIDE
     Indication: OSTEOPOROSIS
     Dosage: 20 UG, QD
     Route: 058
     Dates: start: 201406, end: 20160222
  7. VITAMIN A                          /00056001/ [Concomitant]
     Active Substance: RETINOL
     Dosage: UNK, QD
  8. ADVANTA VITAMIN C [Concomitant]
     Dosage: UNK, QD
  9. ADDITIVA VITAMIN E [Concomitant]
     Dosage: UNK, QD
  10. JUVELA                             /00110502/ [Concomitant]
  11. CALCIUM [Concomitant]
     Active Substance: CALCIUM
     Dosage: UNK, UNKNOWN
     Route: 065
  12. AMINOCHEL SELENIUM [Concomitant]
     Dosage: UNK, QD
  13. ZAPAIN [Concomitant]
     Active Substance: ACETAMINOPHEN\CODEINE PHOSPHATE
     Dosage: UNK, PRN
  14. CALCEOS [Concomitant]
     Active Substance: CALCIUM CARBONATE\CHOLECALCIFEROL
     Dosage: UNK, UNKNOWN
     Route: 065

REACTIONS (3)
  - Vitamin D decreased [Unknown]
  - Vitamin D decreased [Unknown]
  - Vascular calcification [Not Recovered/Not Resolved]

NARRATIVE: CASE EVENT DATE: 20150902
